FAERS Safety Report 21216879 (Version 2)
Quarter: 2022Q4

REPORT INFORMATION
  Report Type: Report from Study
  Country: AR (occurrence: AR)
  Receive Date: 20220816
  Receipt Date: 20221007
  Transmission Date: 20230113
  Serious: Yes (Other)
  Sender: FDA-Public Use
  Company Number: AR-NOVARTISPH-NVSC2022AR184690

PATIENT
  Sex: Female

DRUGS (1)
  1. DIOVAN [Suspect]
     Active Substance: VALSARTAN
     Indication: Hypertension
     Dosage: 80 MG, QD (IN THE MORNING) STARTED MORE THAN 20 YEARS AGO
     Route: 065

REACTIONS (3)
  - Renal aplasia [Unknown]
  - Hyperthyroidism [Unknown]
  - Hypertension [Unknown]
